FAERS Safety Report 21015911 (Version 1)
Quarter: 2022Q2

REPORT INFORMATION
  Report Type: Spontaneous
  Country: LT (occurrence: LT)
  Receive Date: 20220628
  Receipt Date: 20220628
  Transmission Date: 20220721
  Serious: Yes (Hospitalization, Other)
  Sender: FDA-Public Use
  Company Number: None

PATIENT
  Age: 37 Year
  Sex: Male
  Weight: 80 kg

DRUGS (2)
  1. CLONAZEPAM [Suspect]
     Active Substance: CLONAZEPAM
     Indication: Product used for unknown indication
     Route: 048
  2. DIAZEPAM [Suspect]
     Active Substance: DIAZEPAM
     Indication: Product used for unknown indication
     Dosage: PATIENT INGESTED UP TO 10 TABLETS OF DIAZEPAM 5 MG
     Route: 048
     Dates: start: 20220424, end: 20220424

REACTIONS (7)
  - Insomnia [Recovered/Resolved]
  - Tremor [Recovered/Resolved]
  - Drug dependence [Unknown]
  - Anxiety [Recovered/Resolved]
  - Overdose [Unknown]
  - Drug abuse [Unknown]
  - Asthenia [Recovered/Resolved]

NARRATIVE: CASE EVENT DATE: 20220425
